FAERS Safety Report 24756690 (Version 1)
Quarter: 2024Q4

REPORT INFORMATION
  Report Type: Report from Study
  Country: US (occurrence: US)
  Receive Date: 20241220
  Receipt Date: 20241220
  Transmission Date: 20250115
  Serious: Yes (Hospitalization)
  Sender: ACADIA PHARMACEUTICALS
  Company Number: US-ACADIA PHARMACEUTICALS INC.-ACA-2024-PIM-008181

PATIENT
  Sex: Female

DRUGS (18)
  1. NUPLAZID [Suspect]
     Active Substance: PIMAVANSERIN TARTRATE
     Indication: Parkinson^s disease
     Dosage: 34 MILLIGRAM, QD
     Route: 048
     Dates: start: 20240419
  2. NUPLAZID [Suspect]
     Active Substance: PIMAVANSERIN TARTRATE
     Indication: Hallucination
  3. TYLENOL [Concomitant]
     Active Substance: ACETAMINOPHEN
  4. ACTEMRA [Concomitant]
     Active Substance: TOCILIZUMAB
  5. PROVENTIL [Concomitant]
     Active Substance: ALBUTEROL
  6. FOSAMAX [Concomitant]
     Active Substance: ALENDRONATE SODIUM
  7. SYMBICORT [Concomitant]
     Active Substance: BUDESONIDE\FORMOTEROL FUMARATE DIHYDRATE
  8. CALCIUM [Concomitant]
     Active Substance: CALCIUM
  9. VITAMIN D NOS [Concomitant]
     Active Substance: CHOLECALCIFEROL\ERGOCALCIFEROL
  10. CEFIXIME [Concomitant]
     Active Substance: CEFIXIME
  11. DULOXETINE [Concomitant]
     Active Substance: DULOXETINE
  12. FOLIC ACID [Concomitant]
     Active Substance: FOLIC ACID
  13. GABAPENTIN [Concomitant]
     Active Substance: GABAPENTIN
  14. HYDROCHLOROTHIAZIDE [Concomitant]
     Active Substance: HYDROCHLOROTHIAZIDE
  15. ZESTRIL [Concomitant]
     Active Substance: LISINOPRIL
  16. VITAMINS NOS [Concomitant]
     Active Substance: VITAMINS
  17. PRILOSEC [Concomitant]
     Active Substance: OMEPRAZOLE MAGNESIUM
  18. SEROQUEL [Concomitant]
     Active Substance: QUETIAPINE FUMARATE

REACTIONS (1)
  - Bronchitis [Recovered/Resolved]
